FAERS Safety Report 21166598 (Version 5)
Quarter: 2023Q1

REPORT INFORMATION
  Report Type: Spontaneous
  Country: US (occurrence: US)
  Receive Date: 20220803
  Receipt Date: 20230322
  Transmission Date: 20230418
  Serious: Yes (Other)
  Sender: FDA-Public Use
  Company Number: US-MMM-RCEZTPD2

PATIENT

DRUGS (4)
  1. ZEJULA [Suspect]
     Active Substance: NIRAPARIB
     Indication: Ovarian cancer
     Dosage: 200 MG, QD
     Dates: start: 20211221
  2. ZEJULA [Suspect]
     Active Substance: NIRAPARIB
     Dosage: 100 MG, QD
     Route: 048
  3. METOPROLOL [Suspect]
     Active Substance: METOPROLOL
     Indication: Blood pressure increased
     Dosage: UNK
  4. METOPROLOL [Suspect]
     Active Substance: METOPROLOL
     Dosage: UNK UNK, QOD

REACTIONS (20)
  - Neuropathy peripheral [Unknown]
  - Platelet count decreased [Recovering/Resolving]
  - Heart rate increased [Not Recovered/Not Resolved]
  - Blood pressure increased [Not Recovered/Not Resolved]
  - COVID-19 [Unknown]
  - Haemoglobin decreased [Recovering/Resolving]
  - Red blood cell count decreased [Recovering/Resolving]
  - Anaemia [Recovering/Resolving]
  - Blood pressure diastolic increased [Unknown]
  - Poor quality sleep [Unknown]
  - Fatigue [Unknown]
  - Hypoaesthesia [Unknown]
  - Paraesthesia [Unknown]
  - Restless legs syndrome [Unknown]
  - Parosmia [Not Recovered/Not Resolved]
  - Initial insomnia [Not Recovered/Not Resolved]
  - Drug intolerance [Unknown]
  - Heart rate decreased [Unknown]
  - Ageusia [Unknown]
  - White blood cell count decreased [Unknown]

NARRATIVE: CASE EVENT DATE: 20220201
